FAERS Safety Report 8803529 (Version 1)
Quarter: 2012Q4

REPORT INFORMATION
  Report Type: 
  Country: US (occurrence: US)
  Receive Date: 20120924
  Receipt Date: 20120924
  Transmission Date: 20130627
  Serious: Yes (Hospitalization)
  Sender: FDA-Public Use
  Company Number: US-ALEXION-A201201739

PATIENT
  Age: 40 Year
  Sex: Male

DRUGS (2)
  1. SOLIRIS 300MG [Suspect]
     Indication: PAROXYSMAL NOCTURNAL HAEMOGLOBINURIA
     Dosage: 900 mg, q2w
     Route: 042
  2. NORCO [Concomitant]
     Indication: PAIN
     Dosage: UNK, prn
     Route: 048

REACTIONS (1)
  - Wound infection staphylococcal [Recovered/Resolved]
